FAERS Safety Report 12727987 (Version 2)
Quarter: 2016Q3

REPORT INFORMATION
  Report Type: Spontaneous
  Country: RU (occurrence: RU)
  Receive Date: 20160909
  Receipt Date: 20160915
  Transmission Date: 20161109
  Serious: Yes (Hospitalization)
  Sender: FDA-Public Use
  Company Number: RU-BAYER-2016-173534

PATIENT
  Age: 29 Year
  Sex: Male

DRUGS (6)
  1. CIPROFLOXACIN. [Suspect]
     Active Substance: CIPROFLOXACIN
     Indication: MENINGITIS BACTERIAL
     Dosage: UNK
  2. CEFTRIAXONE. [Concomitant]
     Active Substance: CEFTRIAXONE
     Indication: SEPSIS
  3. IMIPENEM [Concomitant]
     Active Substance: IMIPENEM
     Indication: MENINGITIS BACTERIAL
     Dosage: UNK
  4. CEFTRIAXONE. [Concomitant]
     Active Substance: CEFTRIAXONE
     Indication: MENINGITIS BACTERIAL
     Dosage: UNK
  5. CIPROFLOXACIN. [Suspect]
     Active Substance: CIPROFLOXACIN
     Indication: SEPSIS
  6. IMIPENEM [Concomitant]
     Active Substance: IMIPENEM
     Indication: SEPSIS

REACTIONS (2)
  - Acinetobacter test positive [Recovering/Resolving]
  - Meningitis bacterial [Recovering/Resolving]
